FAERS Safety Report 4854358-X (Version None)
Quarter: 2005Q4

REPORT INFORMATION
  Report Type: 
  Country: None (occurrence: None)
  Receive Date: 20051215
  Receipt Date: 20051205
  Transmission Date: 20060501
  Serious: Yes (Hospitalization)
  Sender: FDA-Public Use
  Company Number: VE-ABBOTT-05P-178-0318881-00

PATIENT
  Sex: Male
  Weight: 67 kg

DRUGS (9)
  1. ZEMPLAR [Suspect]
     Indication: HYPERPARATHYROIDISM SECONDARY
     Route: 042
     Dates: start: 20050915, end: 20051124
  2. DICLOFENAC [Suspect]
     Indication: BONE PAIN
     Route: 048
     Dates: end: 20051123
  3. FERRIC HYDROXIDE POLYMALTOSE COMPLEX [Concomitant]
     Indication: ANAEMIA
     Route: 042
  4. EPOGEN [Concomitant]
     Indication: ANAEMIA
     Route: 058
  5. MULTIVITAMIN (BENUTREX) [Concomitant]
     Indication: VITAMIN SUPPLEMENTATION
     Route: 048
  6. MULTIVITAMIN (BENUTREX) [Concomitant]
     Indication: NEUROPATHY
     Route: 042
  7. FOLIC ACID [Concomitant]
     Indication: VITAMIN SUPPLEMENTATION
     Route: 048
  8. LOSARTAN [Concomitant]
     Indication: HYPERTENSION
     Route: 048
  9. AMLODIPINE [Concomitant]
     Indication: HYPERTENSION
     Route: 048

REACTIONS (2)
  - HAEMATEMESIS [None]
  - UPPER GASTROINTESTINAL HAEMORRHAGE [None]
